FAERS Safety Report 9231604 (Version 1)
Quarter: 2013Q1

REPORT INFORMATION
  Report Type: Spontaneous
  Country: US (occurrence: None)
  Receive Date: 20121031
  Receipt Date: 20121031
  Transmission Date: 20140127
  Serious: Yes (Other)
  Sender: FDA-Public Use
  Company Number: PHEH2012US012810

PATIENT
  Age: 39 Year
  Sex: Male
  Weight: 78 kg

DRUGS (4)
  1. GILENYA (FTY) CAPSULE, 0.5MG [Suspect]
     Indication: MULTIPLE SCLEROSIS
     Route: 048
     Dates: start: 20120305, end: 20120611
  2. VITAMIN D (ERGOCALCIFEROL) [Concomitant]
  3. CIALIS (TADALAFIL) [Concomitant]
  4. VIAGRA (SILDENAFIL CITRATE) [Concomitant]

REACTIONS (2)
  - Cystitis [None]
  - Pyrexia [None]
